FAERS Safety Report 6471615-4 (Version None)
Quarter: 2009Q4

REPORT INFORMATION
  Report Type: 
  Country: None (occurrence: None)
  Receive Date: 20091203
  Receipt Date: 20080710
  Transmission Date: 20100525
  Serious: Yes (Other)
  Sender: FDA-Public Use
  Company Number: HU-ELI_LILLY_AND_COMPANY-HU200803005854

PATIENT
  Sex: Female

DRUGS (7)
  1. DULOXETINE HYDROCHLORIDE [Suspect]
     Indication: DEPRESSION
     Dosage: 60 MG, DAILY (1/D)
     Route: 064
     Dates: end: 20071208
  2. LAMOTRIGINE [Concomitant]
     Indication: EPILEPSY
     Dosage: UNK, UNKNOWN
     Route: 064
     Dates: end: 20071208
  3. GABAPENTIN [Concomitant]
     Indication: EPILEPSY
     Dosage: UNK, UNKNOWN
     Route: 064
     Dates: end: 20071208
  4. MIRTAZAPINE [Concomitant]
     Indication: DEPRESSION
     Dosage: UNK, UNKNOWN
     Route: 064
     Dates: end: 20071208
  5. ALPRAZOLAM [Concomitant]
     Indication: PANIC DISORDER
     Dosage: UNK, UNKNOWN
     Route: 064
     Dates: end: 20071208
  6. QUETIAPINE [Concomitant]
     Indication: ANXIETY
     Dosage: UNK, UNKNOWN
     Route: 064
     Dates: end: 20071208
  7. SERTRALINE HCL [Concomitant]
     Dosage: UNK, UNKNOWN
     Route: 064
     Dates: end: 20071208

REACTIONS (2)
  - MATERNAL DRUGS AFFECTING FOETUS [None]
  - NEONATAL HYPOXIA [None]
